FAERS Safety Report 20048622 (Version 2)
Quarter: 2021Q4

REPORT INFORMATION
  Report Type: Report from Study
  Country: CN (occurrence: CN)
  Receive Date: 20211109
  Receipt Date: 20211123
  Transmission Date: 20220303
  Serious: Yes (Other)
  Sender: FDA-Public Use
  Company Number: CN-UCBSA-2021049845

PATIENT
  Age: 67 Year
  Sex: Male
  Weight: 70 kg

DRUGS (21)
  1. NEUPRO [Suspect]
     Active Substance: ROTIGOTINE
     Indication: Product used for unknown indication
     Dosage: 4 MILLIGRAM, ONCE DAILY (QD)
     Dates: start: 20211014
  2. INSULIN DEGLUDEC [Concomitant]
     Active Substance: INSULIN DEGLUDEC
     Indication: Diabetes mellitus
  3. ANISODINE HYDROBROMIDE [Concomitant]
     Active Substance: ANISODINE HYDROBROMIDE
     Indication: Product used for unknown indication
  4. TROXERUTIN [Concomitant]
     Active Substance: TROXERUTIN
     Indication: Product used for unknown indication
  5. NICERGOLINE [Concomitant]
     Active Substance: NICERGOLINE
     Indication: Product used for unknown indication
  6. IDEBENONE [Concomitant]
     Active Substance: IDEBENONE
     Indication: Product used for unknown indication
  7. CARBIDOPA [Concomitant]
     Active Substance: CARBIDOPA
     Indication: Product used for unknown indication
  8. RASAGILINE MESYLATE [Concomitant]
     Active Substance: RASAGILINE MESYLATE
     Indication: Product used for unknown indication
  9. MEMANTINE [Concomitant]
     Active Substance: MEMANTINE
     Indication: Product used for unknown indication
  10. DIOSMIN [Concomitant]
     Active Substance: DIOSMIN
     Indication: Peripheral venous disease
  11. ZOLPIDEM TARTRATE [Concomitant]
     Active Substance: ZOLPIDEM TARTRATE
     Indication: Parkinson^s disease
  12. ALPRAZOLAM [Concomitant]
     Active Substance: ALPRAZOLAM
     Indication: Parkinson^s disease
  13. CITICOLINE [CITICOLINE SODIUM] [Concomitant]
     Indication: Product used for unknown indication
  14. LANSOPRAZOLE [Concomitant]
     Active Substance: LANSOPRAZOLE
     Indication: Product used for unknown indication
  15. GLYCERIN [Concomitant]
     Active Substance: GLYCERIN
     Indication: Constipation
  16. TORSEMIDE [Concomitant]
     Active Substance: TORSEMIDE
     Indication: Peripheral venous disease
  17. CARBIDOPA, LEVODOPA AND ENTACAPONE [Concomitant]
     Active Substance: CARBIDOPA\ENTACAPONE\LEVODOPA
     Indication: Parkinson^s disease
  18. HUMALOG [Concomitant]
     Active Substance: INSULIN LISPRO
     Indication: Diabetes mellitus
  19. METFORMIN\SITAGLIPTIN [Concomitant]
     Active Substance: METFORMIN\SITAGLIPTIN
     Indication: Diabetes mellitus
  20. PRAMIPEXOLE [Concomitant]
     Active Substance: PRAMIPEXOLE
     Indication: Parkinson^s disease
  21. BENSERAZIDE HYDROCHLORIDE\LEVODOPA [Concomitant]
     Active Substance: BENSERAZIDE HYDROCHLORIDE\LEVODOPA
     Indication: Parkinson^s disease

REACTIONS (2)
  - Lacunar infarction [Not Recovered/Not Resolved]
  - Application site pruritus [Not Recovered/Not Resolved]

NARRATIVE: CASE EVENT DATE: 20211014
